FAERS Safety Report 21070597 (Version 1)
Quarter: 2022Q3

REPORT INFORMATION
  Report Type: Spontaneous
  Country: US (occurrence: US)
  Receive Date: 20220712
  Receipt Date: 20220712
  Transmission Date: 20221027
  Serious: Yes (Other)
  Sender: FDA-Public Use
  Company Number: US-PFIZER INC-202200944823

PATIENT
  Age: 94 Year
  Sex: Female

DRUGS (1)
  1. PAXLOVID [Suspect]
     Active Substance: NIRMATRELVIR\RITONAVIR
     Indication: COVID-19 treatment
     Dosage: UNK; LOWERED THE DOSE TO 150
     Dates: start: 20220706, end: 20220710

REACTIONS (5)
  - Hallucination, auditory [Unknown]
  - Hallucination, visual [Unknown]
  - Insomnia [Unknown]
  - Abnormal dreams [Unknown]
  - Feeling abnormal [Unknown]

NARRATIVE: CASE EVENT DATE: 20220707
